FAERS Safety Report 20422431 (Version 2)
Quarter: 2022Q1

REPORT INFORMATION
  Report Type: Spontaneous
  Country: US (occurrence: US)
  Receive Date: 20220203
  Receipt Date: 20220318
  Transmission Date: 20220423
  Serious: Yes (Hospitalization, Other)
  Sender: FDA-Public Use
  Company Number: US-BIOVITRUM-2022US01500

PATIENT
  Age: 0 Year
  Sex: Male
  Weight: 6 kg

DRUGS (7)
  1. SYNAGIS [Suspect]
     Active Substance: PALIVIZUMAB
     Indication: Antiviral prophylaxis
     Route: 030
  2. SYNAGIS [Suspect]
     Active Substance: PALIVIZUMAB
     Dates: start: 20220114
  3. SYNAGIS [Suspect]
     Active Substance: PALIVIZUMAB
     Dates: start: 20220211
  4. D-VI-SOL [Concomitant]
     Indication: Product used for unknown indication
     Dosage: 10 (400) / ML DROPS
  5. OMEPRAZOLE [Concomitant]
     Active Substance: OMEPRAZOLE
     Indication: Product used for unknown indication
     Dosage: SUSP RECON
  6. CHILDRENS FERROUS SULFATE [Concomitant]
     Indication: Product used for unknown indication
  7. EPINEPHRINE [Concomitant]
     Active Substance: EPINEPHRINE
     Indication: Product used for unknown indication

REACTIONS (10)
  - Pneumonia [Unknown]
  - Upper respiratory tract infection [Unknown]
  - Viral infection [Unknown]
  - Bronchiolitis [Unknown]
  - Pyrexia [Unknown]
  - Cough [Recovered/Resolved]
  - Vomiting [Unknown]
  - Wheezing [Unknown]
  - Ear infection [Unknown]
  - Product dose omission issue [Unknown]

NARRATIVE: CASE EVENT DATE: 20211228
